FAERS Safety Report 9918801 (Version 1)
Quarter: 2014Q1

REPORT INFORMATION
  Report Type: Spontaneous
  Country: DE (occurrence: DE)
  Receive Date: 20140224
  Receipt Date: 20140224
  Transmission Date: 20141002
  Serious: Yes (Death)
  Sender: FDA-Public Use
  Company Number: DE-JNJFOC-20140211552

PATIENT
  Age: 71 Year
  Sex: Female
  Weight: 75 kg

DRUGS (7)
  1. XARELTO [Suspect]
     Indication: THROMBOSIS PROPHYLAXIS
     Route: 048
     Dates: start: 20140127, end: 20140128
  2. PANTOZOL [Concomitant]
     Route: 065
  3. LERCANIDIPINE [Concomitant]
     Route: 065
  4. L-THYROXIN [Concomitant]
     Dosage: L-THYROXIN 88 EVERY MONDAY, WEDNESDAY, FRIDAY AND L-THY 10 EVERY TUESDAY, THURSDAY, SATURDAY, SUNDAY
     Route: 065
  5. LOSARTAN POTASSIUM W/HYDROCHLOROTHIAZIDE [Concomitant]
     Route: 065
  6. IBUPROFEN [Concomitant]
     Route: 065
  7. NOVALGIN [Concomitant]
     Dosage: 30 DROPS 4 TIMES A DAY
     Route: 065

REACTIONS (1)
  - Cerebral infarction [Fatal]
